FAERS Safety Report 10364306 (Version 2)
Quarter: 2014Q3

REPORT INFORMATION
  Report Type: Spontaneous
  Country: JP (occurrence: JP)
  Receive Date: 20140806
  Receipt Date: 20140905
  Transmission Date: 20150326
  Serious: Yes (Other)
  Sender: FDA-Public Use
  Company Number: JP-009507513-1408JPN001330

PATIENT
  Age: 4 Year
  Sex: Female

DRUGS (1)
  1. DECADRON (DEXAMETHASONE SODIUM PHOSPHATE) [Suspect]
     Active Substance: DEXAMETHASONE SODIUM PHOSPHATE
     Indication: GLIOBLASTOMA
     Route: 065

REACTIONS (2)
  - Coma [Unknown]
  - Drug ineffective [Unknown]
